FAERS Safety Report 18303354 (Version 1)
Quarter: 2020Q3

REPORT INFORMATION
  Report Type: Spontaneous
  Country: US (occurrence: US)
  Receive Date: 20200923
  Receipt Date: 20200923
  Transmission Date: 20201103
  Serious: No
  Sender: FDA-Public Use
  Company Number: US-SA-2020SA256583

PATIENT

DRUGS (1)
  1. LANTUS [Suspect]
     Active Substance: INSULIN GLARGINE
     Indication: TYPE 2 DIABETES MELLITUS
     Dosage: 35 IU, HS
     Route: 065

REACTIONS (5)
  - Product dose omission issue [Unknown]
  - Device issue [Unknown]
  - Paraesthesia [Unknown]
  - Burning sensation [Unknown]
  - Device leakage [Unknown]
